FAERS Safety Report 18365394 (Version 2)
Quarter: 2020Q4

REPORT INFORMATION
  Report Type: Spontaneous
  Country: US (occurrence: US)
  Receive Date: 20201009
  Receipt Date: 20201015
  Transmission Date: 20210114
  Serious: Yes (Other)
  Sender: FDA-Public Use
  Company Number: US-SK LIFE SCIENCE, INC-SKPVG-2020-000413

PATIENT

DRUGS (1)
  1. XCOPRI [Suspect]
     Active Substance: CENOBAMATE
     Indication: EPILEPSY
     Dosage: 12.5 MILLIGRAM, QD
     Route: 048
     Dates: start: 2020

REACTIONS (5)
  - Pain in extremity [Not Recovered/Not Resolved]
  - Myoclonic epilepsy [Not Recovered/Not Resolved]
  - Anger [Not Recovered/Not Resolved]
  - Hemiparesis [Not Recovered/Not Resolved]
  - Mood altered [Not Recovered/Not Resolved]

NARRATIVE: CASE EVENT DATE: 2020
